FAERS Safety Report 4627718-X (Version None)
Quarter: 2005Q2

REPORT INFORMATION
  Report Type: 
  Country: None (occurrence: None)
  Receive Date: 20050401
  Receipt Date: 20050316
  Transmission Date: 20051028
  Serious: Yes (Life-Threatening, Hospitalization)
  Sender: FDA-Public Use
  Company Number: DSA_26175_2005

PATIENT
  Age: 81 Year
  Sex: Female

DRUGS (6)
  1. MONO-TILDIEM [Suspect]
     Dosage: 300 MG Q DAY PO
     Route: 048
     Dates: end: 20040826
  2. CARDENSIEL [Suspect]
     Dosage: 1.25 MG Q DAY PO
     Route: 048
     Dates: start: 20040611, end: 20040826
  3. ALDACTAZINE [Concomitant]
  4. COVERSYL [Concomitant]
  5. PLAVIX [Concomitant]
  6. LASILIX [Concomitant]

REACTIONS (8)
  - ATRIOVENTRICULAR BLOCK COMPLETE [None]
  - BILIARY TRACT DISORDER [None]
  - BRADYCARDIA [None]
  - BUNDLE BRANCH BLOCK LEFT [None]
  - ELECTROCARDIOGRAM QRS COMPLEX PROLONGED [None]
  - PANCREATITIS ACUTE [None]
  - TORSADE DE POINTES [None]
  - VENTRICULAR EXTRASYSTOLES [None]
